FAERS Safety Report 5296721-1 (Version None)
Quarter: 2007Q2

REPORT INFORMATION
  Report Type: 
  Country: None (occurrence: None)
  Receive Date: 20070413
  Receipt Date: 20070403
  Transmission Date: 20071010
  Serious: Yes (Hospitalization)
  Sender: FDA-Public Use
  Company Number: US-PFIZER-2007026268

PATIENT
  Sex: Female
  Weight: 63 kg

DRUGS (4)
  1. EXEMESTANE [Suspect]
     Indication: BREAST CANCER
     Route: 048
     Dates: start: 20020607, end: 20070320
  2. SYNTHROID [Concomitant]
     Route: 048
  3. HYDROCHLOROTHIAZIDE [Concomitant]
     Route: 048
     Dates: start: 19900101
  4. COZAAR [Concomitant]
     Route: 048
     Dates: start: 19900101

REACTIONS (2)
  - BILE DUCT CANCER [None]
  - NEOPLASM MALIGNANT [None]
